FAERS Safety Report 8531573 (Version 6)
Quarter: 2016Q2

REPORT INFORMATION
  Report Type: Spontaneous
  Country: JP (occurrence: JP)
  Receive Date: 20120426
  Receipt Date: 20160413
  Transmission Date: 20160815
  Serious: Yes (Hospitalization, Disabling)
  Sender: FDA-Public Use
  Company Number: JP-ASTRAZENECA-2012SE20681

PATIENT
  Age: 18004 Day
  Sex: Female
  Weight: 55 kg

DRUGS (14)
  1. ANAPEINE [Suspect]
     Active Substance: ROPIVACAINE HYDROCHLORIDE
     Indication: EPIDURAL ANAESTHESIA
     Dosage: 3 ML/H
     Route: 008
     Dates: start: 20120317, end: 20120317
  2. XYLOCAINE [Concomitant]
     Active Substance: LIDOCAINE HYDROCHLORIDE
     Indication: EPIDURAL ANAESTHESIA
     Route: 008
     Dates: start: 20120316, end: 20120316
  3. CEFMETAZOLE SODIUM [Concomitant]
     Active Substance: CEFMETAZOLE SODIUM
     Indication: INFECTION PROPHYLAXIS
     Route: 042
     Dates: start: 20120316, end: 20120316
  4. BRIDION [Concomitant]
     Active Substance: SUGAMMADEX
     Indication: HYPERTONIA
     Route: 042
     Dates: start: 20120316, end: 20120316
  5. DROLEPTAN [Concomitant]
     Active Substance: DROPERIDOL
     Indication: ANTIEMETIC SUPPORTIVE CARE
     Route: 042
     Dates: start: 20120316, end: 20120316
  6. XYLOCAINE [Concomitant]
     Active Substance: LIDOCAINE HYDROCHLORIDE
     Indication: EPIDURAL TEST DOSE
     Route: 008
     Dates: start: 20120316, end: 20120316
  7. XYLOCAINE [Concomitant]
     Active Substance: LIDOCAINE HYDROCHLORIDE
     Indication: EPIDURAL ANAESTHESIA
     Route: 040
     Dates: start: 20120316, end: 20120316
  8. ESLAX [Concomitant]
     Active Substance: ROCURONIUM BROMIDE
     Indication: INDUCTION OF ANAESTHESIA
     Route: 042
     Dates: start: 20120316, end: 20120316
  9. ANAPEINE [Suspect]
     Active Substance: ROPIVACAINE HYDROCHLORIDE
     Indication: EPIDURAL ANAESTHESIA
     Dosage: 5 ML/H
     Route: 008
     Dates: start: 20120316, end: 20120317
  10. ROPION [Concomitant]
     Active Substance: FLURBIPROFEN AXETIL
     Indication: POSTOPERATIVE ANALGESIA
     Route: 042
     Dates: start: 20120316, end: 20120316
  11. XYLOCAINE [Concomitant]
     Active Substance: LIDOCAINE HYDROCHLORIDE
     Indication: EPIDURAL TEST DOSE
     Route: 040
     Dates: start: 20120316, end: 20120316
  12. PROPOFOL. [Concomitant]
     Active Substance: PROPOFOL
     Indication: INDUCTION OF ANAESTHESIA
     Route: 042
     Dates: start: 20120316, end: 20120316
  13. REMIFENTANIL HYDROCHLORIDE [Concomitant]
     Active Substance: REMIFENTANIL HYDROCHLORIDE
     Indication: INDUCTION AND MAINTENANCE OF ANAESTHESIA
     Route: 042
     Dates: start: 20120316, end: 20120316
  14. SEVOFLURANE. [Concomitant]
     Active Substance: SEVOFLURANE
     Indication: MAINTENANCE OF ANAESTHESIA
     Route: 055
     Dates: start: 20120316, end: 20120316

REACTIONS (3)
  - Diplegia [Recovering/Resolving]
  - Hypoaesthesia [Recovering/Resolving]
  - Neurotoxicity [Recovering/Resolving]

NARRATIVE: CASE EVENT DATE: 20120317
